FAERS Safety Report 12551446 (Version 4)
Quarter: 2016Q3

REPORT INFORMATION
  Report Type: Spontaneous
  Country: IT (occurrence: IT)
  Receive Date: 20160713
  Receipt Date: 20160920
  Transmission Date: 20161109
  Serious: Yes (Hospitalization, Other)
  Sender: FDA-Public Use
  Company Number: IT-BIOVITRUM-2016IT0505

PATIENT
  Age: 17 Year
  Sex: Male

DRUGS (1)
  1. ORFADIN [Suspect]
     Active Substance: NITISINONE
     Indication: TYROSINAEMIA

REACTIONS (3)
  - Drug ineffective [Unknown]
  - Hepatocellular carcinoma [Unknown]
  - Liver transplant [Unknown]

NARRATIVE: CASE EVENT DATE: 20160510
